FAERS Safety Report 9241728 (Version 2)
Quarter: 2013Q2

REPORT INFORMATION
  Report Type: Spontaneous
  Country: US (occurrence: US)
  Receive Date: 20130419
  Receipt Date: 20130501
  Transmission Date: 20140414
  Serious: Yes (Hospitalization, Other)
  Sender: FDA-Public Use
  Company Number: US-PFIZER INC-2013117779

PATIENT
  Age: 67 Year
  Sex: Female
  Weight: 57.14 kg

DRUGS (6)
  1. LEVOXYL [Suspect]
     Indication: THYROID DISORDER
     Dosage: 25 UG, 1X/DAY
     Route: 048
     Dates: start: 1999
  2. LEVOXYL [Suspect]
     Dosage: 50 UG, 1X/DAY
     Route: 048
  3. LEVOXYL [Suspect]
     Dosage: 75 UG, 1X/DAY
     Route: 048
  4. LEVOXYL [Suspect]
     Dosage: UNK (BY SPLITTING THE TABLET OF 125MCG) 1X/DAY
     Route: 048
  5. ATIVAN [Concomitant]
     Dosage: UNK, AS NEEDED
  6. PROVENTIL HFA [Concomitant]
     Indication: HYPERSENSITIVITY
     Dosage: UNK

REACTIONS (13)
  - Drug ineffective [Unknown]
  - Blood thyroid stimulating hormone increased [Unknown]
  - Panic attack [Unknown]
  - Anxiety [Unknown]
  - Hypotension [Unknown]
  - Blood pressure increased [Unknown]
  - Choking [Unknown]
  - Dyspnoea [Unknown]
  - Wrong technique in drug usage process [Unknown]
  - Malaise [Unknown]
  - Palpitations [Unknown]
  - Mental disorder [Unknown]
  - Gastrooesophageal reflux disease [Unknown]
